FAERS Safety Report 9895369 (Version 1)
Quarter: 2014Q1

REPORT INFORMATION
  Report Type: Spontaneous
  Country: PR (occurrence: PR)
  Receive Date: 20140213
  Receipt Date: 20140213
  Transmission Date: 20141002
  Serious: No
  Sender: FDA-Public Use
  Company Number: PR-BRISTOL-MYERS SQUIBB COMPANY-19396084

PATIENT
  Sex: 0

DRUGS (1)
  1. ORENCIA [Suspect]
     Route: 058

REACTIONS (2)
  - Arthritis [Unknown]
  - Dermatitis [Unknown]
